FAERS Safety Report 8862035 (Version 1)
Quarter: 2012Q4

REPORT INFORMATION
  Report Type: 
  Country: US (occurrence: US)
  Receive Date: 20121025
  Receipt Date: 20121025
  Transmission Date: 20130627
  Serious: No
  Sender: FDA-Public Use
  Company Number: US-TARO-2012P1017155

PATIENT
  Age: 1 Month
  Sex: Female

DRUGS (1)
  1. CLOTRIMAZOLE [Suspect]
     Route: 061
     Dates: start: 20120410, end: 20120410

REACTIONS (3)
  - Application site erythema [Recovered/Resolved]
  - Dry skin [Recovering/Resolving]
  - Skin fissures [Recovering/Resolving]
